FAERS Safety Report 9269474 (Version 2)
Quarter: 2014Q1

REPORT INFORMATION
  Report Type: Spontaneous
  Country: GB (occurrence: GB)
  Receive Date: 20130503
  Receipt Date: 20140226
  Transmission Date: 20141002
  Serious: Yes (Hospitalization, Other)
  Sender: FDA-Public Use
  Company Number: GB-PFIZER INC-2013136666

PATIENT
  Age: 49 Year
  Sex: Female

DRUGS (20)
  1. IBUPROFEN [Suspect]
     Dosage: 4800 MG, SINGLE (200 MG X 24)
     Route: 048
     Dates: start: 20130124, end: 20130124
  2. PARACETAMOL [Suspect]
     Dosage: 8000 MG, SINGLE (500 MG X 16)
     Route: 048
     Dates: start: 20130124, end: 20130124
  3. RAMIPRIL [Suspect]
     Dosage: 140MG, SINGLE (2.5 MG X 56)
     Route: 048
     Dates: start: 20130124, end: 20130124
  4. RAMIPRIL [Suspect]
     Dosage: UNK
     Dates: end: 20140206
  5. FLUOXETINE HCL [Suspect]
     Dosage: 1120 MG, SINGLE (20 MG X 56)
     Route: 048
     Dates: start: 20130124, end: 20130124
  6. FLUOXETINE HCL [Suspect]
     Dosage: UNK
     Dates: end: 20140206
  7. CLOPIDOGREL SULFATE [Suspect]
     Dosage: 2100 MG, SINGLE (75 MG X 28)
     Route: 048
     Dates: start: 20130124, end: 20130124
  8. CLOPIDOGREL SULFATE [Suspect]
     Dosage: UNK
     Dates: end: 20140206
  9. BISOPROLOL FUMARATE [Suspect]
     Dosage: 560 MG, SINGLE (10 MG X 56)
     Route: 048
     Dates: start: 20130124, end: 20130124
  10. BISOPROLOL FUMARATE [Suspect]
     Dosage: UNK
     Dates: end: 20140206
  11. ZAPONEX [Suspect]
     Indication: SCHIZOPHRENIA
     Dosage: UNK
     Route: 048
     Dates: start: 20041014, end: 20130129
  12. ZAPONEX [Suspect]
     Dosage: UNK
     Route: 048
     Dates: start: 20130304, end: 20140206
  13. FUROSEMIDE [Suspect]
     Dosage: 1120 MG, SINGLE (40 MG X 28)
     Route: 048
     Dates: start: 20130124, end: 20130124
  14. ASPIRIN [Suspect]
     Dosage: ONCE
     Route: 048
     Dates: start: 20130124, end: 20130124
  15. OLANZAPINE [Suspect]
     Indication: PRODUCT USED FOR UNKNOWN INDICATION
     Dosage: UNK, ONCE
     Route: 065
     Dates: start: 20140206, end: 20140206
  16. LANSOPRAZOLE [Concomitant]
     Indication: DYSPEPSIA
     Dosage: 30 MG, 1X/DAY
     Route: 048
  17. LANSOPRAZOLE [Concomitant]
     Indication: GASTRITIS
  18. GAVISCON [Concomitant]
     Indication: DYSPEPSIA
     Dosage: 10 ML, UNK
     Route: 048
  19. GAVISCON [Concomitant]
     Indication: GASTRITIS
  20. CLOZAPINE [Concomitant]
     Dosage: UNK
     Dates: start: 20010114, end: 20041013

REACTIONS (11)
  - Intentional overdose [Unknown]
  - Renal failure acute [Recovered/Resolved]
  - Dysarthria [Unknown]
  - Coma scale abnormal [Unknown]
  - Faecal incontinence [Unknown]
  - Alanine aminotransferase increased [Recovered/Resolved]
  - Agitation [Unknown]
  - Confusional state [Unknown]
  - Hypercholesterolaemia [Not Recovered/Not Resolved]
  - Dehydration [Recovered/Resolved]
  - Treatment noncompliance [Recovered/Resolved]
